FAERS Safety Report 22015636 (Version 1)
Quarter: 2023Q1

REPORT INFORMATION
  Report Type: Other
  Country: JP (occurrence: JP)
  Receive Date: 20230221
  Receipt Date: 20230221
  Transmission Date: 20230417
  Serious: Yes (Other)
  Sender: FDA-Public Use
  Company Number: JP-CHUGAI-2022028559

PATIENT
  Age: 69 Year
  Sex: Female

DRUGS (3)
  1. AVASTIN [Suspect]
     Active Substance: BEVACIZUMAB
     Indication: Invasive ductal breast carcinoma
     Dosage: UNK
     Route: 041
     Dates: start: 202104, end: 2021
  2. PACLITAXEL [Concomitant]
     Active Substance: PACLITAXEL
     Indication: Invasive ductal breast carcinoma
     Dosage: UNK
     Route: 041
     Dates: start: 202104, end: 2021
  3. PACLITAXEL [Concomitant]
     Active Substance: PACLITAXEL
     Dosage: 70% DOSE
     Route: 041
     Dates: start: 2021, end: 2021

REACTIONS (2)
  - Neuropathy peripheral [Unknown]
  - Off label use [Unknown]
